FAERS Safety Report 9402329 (Version 2)
Quarter: 2013Q3

REPORT INFORMATION
  Report Type: Spontaneous
  Country: ES (occurrence: ES)
  Receive Date: 20130716
  Receipt Date: 20130812
  Transmission Date: 20140515
  Serious: Yes (Hospitalization, Other)
  Sender: FDA-Public Use
  Company Number: ES-PFIZER INC-2013207204

PATIENT
  Age: 81 Year
  Sex: Female

DRUGS (11)
  1. LYRICA [Suspect]
     Indication: PAIN
     Dosage: 150 MG, 2X/DAY
     Route: 048
     Dates: start: 201302, end: 20130326
  2. FENTANYL [Interacting]
     Indication: PAIN
     Dosage: 25 UG, EVERY 72 HOURS
     Route: 062
     Dates: start: 201303, end: 20130326
  3. PAROXETINE [Concomitant]
     Dosage: 20 MG, UNK
  4. LORMETAZEPAM [Concomitant]
     Dosage: 2 MG, UNK
  5. UROTROL [Concomitant]
     Dosage: 4 MG, UNK
  6. ENALAPRIL [Concomitant]
     Dosage: 5 MG, UNK
  7. BISOPROLOL [Concomitant]
     Dosage: 2.5 MG, 2X/DAY
  8. FUROSEMIDE [Concomitant]
     Dosage: 40 MG, 2X/DAY
  9. ACETYLSALICYLIC ACID [Concomitant]
     Dosage: 100 MG, UNK
  10. NITRODERM [Concomitant]
     Dosage: 10 MG, UNK
  11. OMEPRAZOLE [Concomitant]
     Dosage: 20 MG, UNK

REACTIONS (4)
  - Drug interaction [Recovered/Resolved]
  - Confusional state [Recovered/Resolved]
  - Urinary tract infection [Unknown]
  - Agitation [Unknown]
